FAERS Safety Report 5404333-1 (Version None)
Quarter: 2007Q3

REPORT INFORMATION
  Report Type: 
  Country: None (occurrence: None)
  Receive Date: 20070713
  Receipt Date: 20070122
  Transmission Date: 20080115
  Serious: Yes (Hospitalization, Other)
  Sender: FDA-Public Use
  Company Number: 251313

PATIENT
  Age: 75 Year
  Sex: Female
  Weight: 65.3 kg

DRUGS (14)
  1. ACTIVELLA [Suspect]
     Indication: MENOPAUSAL SYMPTOMS
     Dosage: 1 MG/0.5 MG, ORAL
     Route: 048
     Dates: start: 20001122, end: 20011210
  2. ACTIVELLA [Suspect]
     Indication: OSTEOPOROSIS
     Dosage: 1 MG/0.5 MG, ORAL
     Route: 048
     Dates: start: 20001122, end: 20011210
  3. PREMARIN [Suspect]
     Indication: MENOPAUSAL SYMPTOMS
     Dosage: 0.625 MG, ORAL
     Route: 048
     Dates: start: 19890925, end: 20001101
  4. PROVERA [Suspect]
     Indication: MENOPAUSAL SYMPTOMS
     Dosage: 10 MG, ORAL
     Route: 048
     Dates: start: 19890925, end: 20001101
  5. FEMHRT [Suspect]
     Indication: MENOPAUSAL SYMPTOMS
     Dosage: ORAL
     Route: 048
     Dates: start: 20011227, end: 20021107
  6. HORMONE REPLACEMENTS DRUGS (NOS) [Suspect]
     Indication: MENOPAUSAL SYMPTOMS
     Dates: start: 19911031
  7. CYCRIN [Suspect]
     Indication: MENOPAUSAL SYMPTOMS
     Dates: start: 19981217, end: 19990714
  8. MEDROXYPROGESTERONE ACETATE [Suspect]
     Indication: MENOPAUSAL SYMPTOMS
     Dates: start: 19990927, end: 20000807
  9. LIPITOR [Concomitant]
  10. FOSAMAX [Concomitant]
  11. SYNTHROID [Concomitant]
  12. ENALAPRIL (ENALAPRIL) [Concomitant]
  13. VIOXX [Concomitant]
  14. ELAVIL [Concomitant]

REACTIONS (1)
  - BREAST CANCER METASTATIC [None]
